FAERS Safety Report 18648374 (Version 1)
Quarter: 2020Q4

REPORT INFORMATION
  Report Type: Spontaneous
  Country: US (occurrence: US)
  Receive Date: 20201222
  Receipt Date: 20201222
  Transmission Date: 20210114
  Serious: Yes (Other)
  Sender: FDA-Public Use
  Company Number: None

PATIENT
  Age: 47 Year
  Sex: Female

DRUGS (4)
  1. VIT D [Concomitant]
     Active Substance: VITAMIN D NOS
  2. CLOBETASOL OINTMENT [Concomitant]
     Active Substance: CLOBETASOL
  3. DOTAREM [Suspect]
     Active Substance: GADOTERATE MEGLUMINE
     Indication: SCAN WITH CONTRAST
     Dates: start: 20201202, end: 20201202
  4. FOLATE [Concomitant]
     Active Substance: FOLATE SODIUM

REACTIONS (7)
  - Hypoaesthesia [None]
  - Vision blurred [None]
  - Contrast media reaction [None]
  - Blepharospasm [None]
  - Burning sensation [None]
  - Pain in jaw [None]
  - Bone pain [None]

NARRATIVE: CASE EVENT DATE: 20201202
